FAERS Safety Report 18561457 (Version 1)
Quarter: 2020Q4

REPORT INFORMATION
  Report Type: Spontaneous
  Country: US (occurrence: US)
  Receive Date: 20201130
  Receipt Date: 20201130
  Transmission Date: 20210114
  Serious: No
  Sender: FDA-Public Use
  Company Number: US-009507513-2011USA014190

PATIENT
  Age: 63 Year
  Sex: Female

DRUGS (12)
  1. GILENYA [Suspect]
     Active Substance: FINGOLIMOD HYDROCHLORIDE
     Indication: MULTIPLE SCLEROSIS
     Dosage: 0.5 MG, QD
     Route: 048
     Dates: start: 20110909
  2. ZOCOR [Suspect]
     Active Substance: SIMVASTATIN
     Dosage: 40 MG, UNK
  3. PREMARIN [Concomitant]
     Active Substance: ESTROGENS, CONJUGATED
     Dosage: 1.25 MILLIGRAM, QD
  4. METOPROLOL. [Concomitant]
     Active Substance: METOPROLOL
     Dosage: 50 MILLIGRAM, QD; 25 MG, BID
  5. PIROXICAM. [Concomitant]
     Active Substance: PIROXICAM
     Dosage: 20 MG, QD
  6. PROVIGIL [Concomitant]
     Active Substance: MODAFINIL
     Dosage: 400 MILLIGRAM, QD; 200 MG, BID
  7. VESICARE [Concomitant]
     Active Substance: SOLIFENACIN SUCCINATE
     Dosage: 5 MG, QD
  8. DOXEPIN HYDROCHLORIDE. [Concomitant]
     Active Substance: DOXEPIN HYDROCHLORIDE
     Dosage: 200 MG, QD
  9. PRAMIPEXOLE. [Concomitant]
     Active Substance: PRAMIPEXOLE
     Dosage: 1 MILLIGRAM, QD; 0.5 MG, BID
  10. EFFIENT [Concomitant]
     Active Substance: PRASUGREL HYDROCHLORIDE
     Dosage: 10 MG, QD
  11. ACIPHEX [Concomitant]
     Active Substance: RABEPRAZOLE SODIUM
     Dosage: 20 MG, QD
  12. PRINIVIL [Suspect]
     Active Substance: LISINOPRIL
     Dosage: 1 (UNIT NOT REPORTED), QD

REACTIONS (4)
  - Erythema [Unknown]
  - Alopecia [Unknown]
  - Pruritus [Unknown]
  - Urticaria [Unknown]
